FAERS Safety Report 24209963 (Version 1)
Quarter: 2024Q3

REPORT INFORMATION
  Report Type: Spontaneous
  Country: CN (occurrence: CN)
  Receive Date: 20240814
  Receipt Date: 20240814
  Transmission Date: 20241017
  Serious: Yes (Other)
  Sender: HISUN PHARMACEUTICALS
  Company Number: CN-Hisun Pharmaceuticals-2160383

PATIENT
  Age: 81 Year
  Sex: Female
  Weight: 64 kg

DRUGS (3)
  1. IRBESARTAN [Suspect]
     Active Substance: IRBESARTAN
     Indication: Hypertension
     Route: 048
     Dates: start: 20240723, end: 20240728
  2. SACUBITRIL\VALSARTAN [Suspect]
     Active Substance: SACUBITRIL\VALSARTAN
     Route: 048
     Dates: start: 20240728, end: 20240730
  3. SPIRONOLACTONE [Suspect]
     Active Substance: SPIRONOLACTONE
     Route: 048
     Dates: start: 20240723, end: 20240728

REACTIONS (4)
  - Blood pressure inadequately controlled [Unknown]
  - Blood uric acid increased [Unknown]
  - Blood creatinine increased [Unknown]
  - Blood urea increased [Unknown]
